FAERS Safety Report 5500892-9 (Version None)
Quarter: 2007Q4

REPORT INFORMATION
  Report Type: 
  Country: None (occurrence: None)
  Receive Date: 20071029
  Receipt Date: 20071019
  Transmission Date: 20080405
  Serious: Yes (Other)
  Sender: FDA-Public Use
  Company Number: US-ASTRAZENECA-2007UW02004

PATIENT
  Sex: Female

DRUGS (1)
  1. SEROQUEL [Suspect]
     Route: 048
     Dates: start: 20030401

REACTIONS (10)
  - ABDOMINAL PAIN [None]
  - BACK PAIN [None]
  - CELLULITIS [None]
  - COUGH [None]
  - DYSPNOEA [None]
  - GOITRE [None]
  - INSOMNIA [None]
  - PYREXIA [None]
  - TYPE 1 DIABETES MELLITUS [None]
  - UTERINE LEIOMYOMA [None]
